FAERS Safety Report 8496056 (Version 4)
Quarter: 2012Q4

REPORT INFORMATION
  Report Type: 
  Country: CZ (occurrence: CZ)
  Receive Date: 20120405
  Receipt Date: 20120910
  Transmission Date: 20130627
  Serious: Yes (Hospitalization, Other)
  Sender: FDA-Public Use
  Company Number: PHHO2012CZ005051

PATIENT
  Age: 66 Year
  Sex: Female
  Weight: 88 kg

DRUGS (10)
  1. METHOTREXATE [Suspect]
     Indication: RHEUMATOID ARTHRITIS
     Dosage: 1 DF, QW
     Route: 048
     Dates: start: 20120216, end: 20120223
  2. METHOTREXATE [Suspect]
     Dosage: 1 DF, UNK
     Route: 048
     Dates: start: 20120323
  3. HUMIRA [Concomitant]
     Indication: RHEUMATOID ARTHRITIS
     Dosage: 40 mg, BIW
     Route: 058
     Dates: start: 20120215
  4. FOLIC ACID [Concomitant]
     Indication: PROPHYLAXIS
     Dosage: UNK
     Dates: start: 20120217, end: 20120322
  5. DICLOFENAC SODIUM [Concomitant]
     Indication: RHEUMATOID ARTHRITIS
     Dosage: 100 mg, QD
     Route: 048
     Dates: start: 20120113, end: 20120228
  6. LANSOPRAZOLE [Concomitant]
     Indication: PROPHYLAXIS
     Dosage: 5 mg, QD
     Route: 048
     Dates: start: 20120113, end: 201203
  7. PERINDOPRIL [Concomitant]
     Indication: MYOCARDIAL ISCHAEMIA
     Dosage: 5 mg, QD
     Route: 048
     Dates: start: 200511
  8. CARVEDILOL [Concomitant]
     Indication: HYPERTENSION
     Dosage: 25 mg, BID
     Route: 048
     Dates: start: 200511, end: 20120228
  9. SALICYLIC ACID [Concomitant]
     Indication: MYOCARDIAL ISCHAEMIA
     Dosage: 100 mg, QD
     Route: 048
     Dates: start: 200511
  10. ATORVASTATIN [Concomitant]
     Indication: HYPERLIPIDAEMIA
     Dosage: 20 mg, QD
     Route: 048
     Dates: start: 200511

REACTIONS (1)
  - Asthenia [Recovered/Resolved]
